FAERS Safety Report 15734784 (Version 1)
Quarter: 2018Q4

REPORT INFORMATION
  Report Type: Spontaneous
  Country: US (occurrence: US)
  Receive Date: 20181218
  Receipt Date: 20181218
  Transmission Date: 20190205
  Serious: No
  Sender: FDA-Public Use
  Company Number: US-PFIZER INC-2018517249

PATIENT
  Age: 49 Year
  Sex: Female
  Weight: 54 kg

DRUGS (1)
  1. PREMARIN [Suspect]
     Active Substance: ESTROGENS, CONJUGATED
     Indication: ATROPHIC VULVOVAGINITIS
     Dosage: UNK UNK, 2X/WEEK(APPROXIMATELY HALF AN APPLICATOR USED TWICE A WEEK)

REACTIONS (3)
  - Anxiety [Unknown]
  - Panic reaction [Unknown]
  - Insomnia [Unknown]

NARRATIVE: CASE EVENT DATE: 20181211
